FAERS Safety Report 7101938-7 (Version None)
Quarter: 2010Q4

REPORT INFORMATION
  Report Type: 
  Country: None (occurrence: None)
  Receive Date: 20101115
  Receipt Date: 20100929
  Transmission Date: 20110411
  Serious: No
  Sender: FDA-Public Use
  Company Number: US-BAYER-201028814NA

PATIENT
  Age: 66 Year
  Sex: Male

DRUGS (8)
  1. LEUKINE [Suspect]
     Indication: PROSTATE CANCER
     Dosage: TOTAL DAILY DOSE: 250 ?G
     Dates: start: 20100601
  2. ADT3 [Concomitant]
  3. TRELSTAR [Concomitant]
  4. LUPRON [Concomitant]
  5. AVODART [Concomitant]
  6. KETOCONAZOLE [Concomitant]
  7. VITAMIN D [Concomitant]
  8. RESVERATROL [Concomitant]

REACTIONS (2)
  - BRONCHITIS [None]
  - WHITE BLOOD CELL COUNT DECREASED [None]
